FAERS Safety Report 8506588-3 (Version None)
Quarter: 2012Q3

REPORT INFORMATION
  Report Type: 
  Country: None (occurrence: None)
  Receive Date: 20120712
  Receipt Date: 20120703
  Transmission Date: 20120928
  Serious: Yes (Hospitalization)
  Sender: FDA-Public Use
  Company Number: FR-BRISTOL-MYERS SQUIBB COMPANY-16737959

PATIENT
  Age: 76 Year
  Sex: Female

DRUGS (8)
  1. ALUMINUM HYDROXIDE AND MAGNESIUM TRISILICATE [Concomitant]
  2. ENALAPRIL MALEATE [Concomitant]
  3. HYDREA [Suspect]
     Indication: ACUTE MYELOID LEUKAEMIA
     Route: 048
     Dates: start: 20120222, end: 20120228
  4. AMOXICILLIN [Suspect]
     Indication: PYELONEPHRITIS
     Route: 042
     Dates: start: 20120226, end: 20120227
  5. FENOFIBRATE [Concomitant]
  6. ALLOPURINOL [Concomitant]
  7. LOVENOX [Concomitant]
  8. TAZOBACTAM [Suspect]
     Indication: PYELONEPHRITIS
     Dates: start: 20120222, end: 20120225

REACTIONS (1)
  - TOXIC SKIN ERUPTION [None]
